FAERS Safety Report 16467445 (Version 2)
Quarter: 2025Q3

REPORT INFORMATION
  Report Type: Spontaneous
  Country: EU (occurrence: EU)
  Receive Date: 20190624
  Receipt Date: 20250724
  Transmission Date: 20251020
  Serious: Yes (Life-Threatening, Other)
  Sender: AUROBINDO
  Company Number: EU-AUROBINDO-AUR-APL-2019-035601

PATIENT
  Age: 79 Year
  Sex: Female

DRUGS (1)
  1. ENTACAPONE [Suspect]
     Active Substance: ENTACAPONE
     Indication: Parkinson^s disease
     Route: 065

REACTIONS (4)
  - Hypokalaemia [Unknown]
  - Loss of consciousness [Unknown]
  - Diarrhoea [Unknown]
  - Orthostatic hypotension [Unknown]
